FAERS Safety Report 8940606 (Version 2)
Quarter: 2013Q1

REPORT INFORMATION
  Report Type: Spontaneous
  Country: ES (occurrence: ES)
  Receive Date: 20121203
  Receipt Date: 20130128
  Transmission Date: 20140127
  Serious: Yes (Other)
  Sender: FDA-Public Use
  Company Number: ES-JNJFOC-20121111717

PATIENT
  Age: 0 Year
  Sex: Male
  Weight: 2.59 kg

DRUGS (5)
  1. STELARA [Suspect]
     Indication: FOETAL EXPOSURE DURING PREGNANCY
     Route: 015
     Dates: start: 20100308
  2. OXYTOCIN [Concomitant]
     Indication: FOETAL EXPOSURE DURING PREGNANCY
     Route: 015
     Dates: start: 20111022
  3. LABETALOL [Concomitant]
     Indication: FOETAL EXPOSURE DURING PREGNANCY
     Route: 015
     Dates: start: 20111021
  4. METILDOPA [Concomitant]
     Indication: FOETAL EXPOSURE DURING PREGNANCY
     Route: 015
  5. FOLIC ACID [Concomitant]
     Indication: FOETAL EXPOSURE DURING PREGNANCY
     Route: 015

REACTIONS (2)
  - Premature baby [Not Recovered/Not Resolved]
  - Exposure during breast feeding [Unknown]
